FAERS Safety Report 17157379 (Version 2)
Quarter: 2020Q3

REPORT INFORMATION
  Report Type: Spontaneous
  Country: DK (occurrence: DK)
  Receive Date: 20191216
  Receipt Date: 20200714
  Transmission Date: 20201102
  Serious: Yes (Hospitalization)
  Sender: FDA-Public Use
  Company Number: DK-TEVA-2019-DK-1151140

PATIENT
  Age: 20 Year
  Sex: Female

DRUGS (7)
  1. QUETIAPINE. [Concomitant]
     Active Substance: QUETIAPINE
     Indication: DEPRESSION
     Dosage: STRENGTH: 25 MG.?DOSAGE: 25?50 MG 1X DGL.
     Route: 048
     Dates: start: 20180111, end: 20180216
  2. DROSPIRENON OG ETHINYLESTRADIOL [Concomitant]
     Indication: CONTRACEPTION
     Dosage: STRENGTH: 3 MG + 20 MICROGRAMS, 1 DF
     Route: 048
     Dates: start: 20150422
  3. ONDANSETRON [Concomitant]
     Active Substance: ONDANSETRON
     Indication: NAUSEA
     Dosage: DOSAGE: UNKNOWN. STRENGTH: UNKNOWN.
  4. PARACETAMOL [Concomitant]
     Active Substance: ACETAMINOPHEN
     Indication: PAIN
     Dosage: STRENGTH: 500 MG.?DOSAGE: 1000 MG AS NEEDED, BUT MAX. 1X DGL.
     Route: 048
  5. DULOXETINE. [Suspect]
     Active Substance: DULOXETINE
     Indication: ANTIDEPRESSANT THERAPY
     Dosage: STRENGTH: 40 AND 60 MG.?DOSAGE: VARYING.
     Route: 048
     Dates: start: 2015
  6. TRAMADOL. [Concomitant]
     Active Substance: TRAMADOL
     Indication: PAIN
     Dosage: STRENGTH: 50 MG.?DOSAGE: 50 MG. AS NEEDED, HOWEVER, MAX. 6X DGL.
     Route: 048
     Dates: start: 20180216, end: 20180528
  7. AGOMELATINE [Concomitant]
     Active Substance: AGOMELATINE
     Indication: DEPRESSION
     Dosage: STRENGTH: 25 MG.
     Route: 048
     Dates: start: 20151021, end: 20190808

REACTIONS (6)
  - Pancreatitis [Recovered/Resolved]
  - Vomiting [Unknown]
  - Amylase increased [Recovered/Resolved]
  - Abdominal pain [Not Recovered/Not Resolved]
  - Nausea [Not Recovered/Not Resolved]
  - Pancreatitis [Recovered/Resolved]

NARRATIVE: CASE EVENT DATE: 20151118
